FAERS Safety Report 4484439-4 (Version None)
Quarter: 2004Q4

REPORT INFORMATION
  Report Type: 
  Country: None (occurrence: None)
  Receive Date: 20041021
  Receipt Date: 20041006
  Transmission Date: 20050328
  Serious: No
  Sender: FDA-Public Use
  Company Number: 2004AL000834

PATIENT
  Age: 48 Year
  Sex: 0

DRUGS (2)
  1. PHENOBARBITAL TABLETS UPS, 15MG AND 20 MG (PUREPAC) [Suspect]
     Dosage: PO
     Route: 048
  2. PHENOBARBITAL  ELIXIR UPS ( ARPHAMA) [Suspect]
     Route: 048

REACTIONS (2)
  - COMPLETED SUICIDE [None]
  - INTENTIONAL OVERDOSE [None]
